FAERS Safety Report 10065280 (Version 1)
Quarter: 2014Q1

REPORT INFORMATION
  Report Type: Spontaneous
  Country: US (occurrence: None)
  Receive Date: 20140328
  Receipt Date: 20140328
  Transmission Date: 20141002
  Serious: No
  Sender: FDA-Public Use
  Company Number: CABO-14003888

PATIENT
  Age: 74 Year
  Sex: Male
  Weight: 80 kg

DRUGS (10)
  1. COMETRIQ [Suspect]
     Indication: RENAL CANCER
     Route: 048
     Dates: start: 20131230, end: 20140108
  2. MEGACE ( MEGESTROL ACETATE) [Concomitant]
  3. JANUVIA ( SITAGLIPTIN PHOSPHATE) [Concomitant]
  4. METFORMIN (METFORMIN) [Concomitant]
  5. PROCRIT ( EPOETIN ALFA) [Concomitant]
  6. PANTOPRAZOLE ( PANTOPRAZOLE) [Concomitant]
  7. TAMSULOSIN ( TAMSULOSIN) [Concomitant]
  8. LANOXIN ( DIGOXIN) [Concomitant]
  9. ALLOPURINOL ( ALLOPURINOL) [Concomitant]
  10. PRADAXA ( DABIGATRAN ETEXILATE MESILATE) [Concomitant]

REACTIONS (9)
  - Syncope [None]
  - Eructation [None]
  - Fall [None]
  - Red blood cell count decreased [None]
  - Vomiting [None]
  - Fatigue [None]
  - Decreased appetite [None]
  - White blood cell count decreased [None]
  - Off label use [None]
